FAERS Safety Report 18282060 (Version 1)
Quarter: 2020Q3

REPORT INFORMATION
  Report Type: Spontaneous
  Country: US (occurrence: US)
  Receive Date: 20200918
  Receipt Date: 20200918
  Transmission Date: 20201103
  Serious: Yes (Hospitalization)
  Sender: FDA-Public Use
  Company Number: None

PATIENT
  Age: 60 Year
  Sex: Female

DRUGS (22)
  1. MELOXICAM. [Concomitant]
     Active Substance: MELOXICAM
  2. SYMBICORT [Concomitant]
     Active Substance: BUDESONIDE\FORMOTEROL FUMARATE DIHYDRATE
  3. CLOBETASOL CRE [Concomitant]
  4. CLOPIDOGREL [Concomitant]
     Active Substance: CLOPIDOGREL BISULFATE
  5. LEVETIRACETAM. [Concomitant]
     Active Substance: LEVETIRACETAM
  6. LORAZEPAM. [Concomitant]
     Active Substance: LORAZEPAM
  7. MONTELUKAST [Concomitant]
     Active Substance: MONTELUKAST SODIUM
  8. CIMZIA [Suspect]
     Active Substance: CERTOLIZUMAB PEGOL
     Indication: RHEUMATOID ARTHRITIS
     Dosage: ?          OTHER FREQUENCY:EVERY 14 DAYS;?
     Route: 058
     Dates: start: 20190725
  9. PANTOPRAZOLE [Concomitant]
     Active Substance: PANTOPRAZOLE
  10. ROPINIROLE. [Concomitant]
     Active Substance: ROPINIROLE
  11. ALBUTEROL. [Concomitant]
     Active Substance: ALBUTEROL
  12. GABAPENTIN. [Concomitant]
     Active Substance: GABAPENTIN
  13. ISOSORB MONO [Concomitant]
     Active Substance: ISOSORBIDE MONONITRATE
  14. NITROGLYCERIN. [Concomitant]
     Active Substance: NITROGLYCERIN
  15. ATORVASTATIN [Concomitant]
     Active Substance: ATORVASTATIN
  16. ECONAZOLE CRE [Concomitant]
  17. FUROSEMIDE. [Concomitant]
     Active Substance: FUROSEMIDE
  18. LAMOTRIGINE. [Concomitant]
     Active Substance: LAMOTRIGINE
  19. LOSARTAN. [Concomitant]
     Active Substance: LOSARTAN
  20. ASPIRIN. [Concomitant]
     Active Substance: ASPIRIN
  21. DULOXETINE. [Concomitant]
     Active Substance: DULOXETINE
  22. SUMATRIPTAN. [Concomitant]
     Active Substance: SUMATRIPTAN

REACTIONS (2)
  - Seizure [None]
  - COVID-19 [None]

NARRATIVE: CASE EVENT DATE: 20200612
